FAERS Safety Report 8441008 (Version 4)
Quarter: 2013Q2

REPORT INFORMATION
  Report Type: Spontaneous
  Country: JP (occurrence: None)
  Receive Date: 20120223
  Receipt Date: 20130628
  Transmission Date: 20140414
  Serious: Yes (Hospitalization, Other)
  Sender: FDA-Public Use
  Company Number: ADR-2012-00371

PATIENT
  Age: 6 Year
  Sex: Female

DRUGS (1)
  1. BACLOFEN [Suspect]
     Dosage: 25 MCG/DAY

REACTIONS (4)
  - POSTOPERATIVE WOUND INFECTION [None]
  - BLOOD CREATINE PHOSPHOKINASE INCREASED [None]
  - OPISTHOTONUS [None]
  - WITHDRAWAL SYNDROME [None]
